FAERS Safety Report 21016663 (Version 1)
Quarter: 2022Q2

REPORT INFORMATION
  Report Type: Report from Study
  Country: US (occurrence: US)
  Receive Date: 20220628
  Receipt Date: 20220628
  Transmission Date: 20220721
  Serious: Yes (Hospitalization, Other)
  Sender: FDA-Public Use
  Company Number: US-GILEAD-2022-0582155

PATIENT
  Sex: Male

DRUGS (2)
  1. AMBRISENTAN [Suspect]
     Active Substance: AMBRISENTAN
     Indication: Pulmonary hypertension
     Dosage: 5 MG, QD
     Route: 048
     Dates: start: 20220510
  2. SILDENAFIL [Concomitant]
     Active Substance: SILDENAFIL

REACTIONS (7)
  - Ascites [Unknown]
  - Oxygen saturation decreased [Unknown]
  - Ocular hyperaemia [Not Recovered/Not Resolved]
  - Dyspnoea [Not Recovered/Not Resolved]
  - Fluid retention [Unknown]
  - Seasonal allergy [Not Recovered/Not Resolved]
  - Daydreaming [Not Recovered/Not Resolved]
